FAERS Safety Report 4599751-8 (Version None)
Quarter: 2005Q1

REPORT INFORMATION
  Report Type: 
  Country: None (occurrence: None)
  Receive Date: 20050304
  Receipt Date: 20050304
  Transmission Date: 20050727
  Serious: Yes (Hospitalization)
  Sender: FDA-Public Use
  Company Number: None

PATIENT
  Age: 74 Year
  Sex: Female
  Weight: 66.6 kg

DRUGS (7)
  1. CAPECITABINE    150 MG      ROCHE [Suspect]
     Indication: NEOPLASM
     Dosage: 150 -ONE-    BID   ORAL
     Route: 048
     Dates: start: 20050203, end: 20050303
  2. CAPECITABINE      500 MG          ROCHE [Suspect]
     Indication: NEOPLASM
     Dosage: 500 -3 + 2-    AM + PM    ORAL
     Route: 048
     Dates: start: 20050203, end: 20050303
  3. PROCHLORPERAZINE [Concomitant]
  4. SILVER SULFADIAZINE [Concomitant]
  5. SIMVASTATIN [Concomitant]
  6. ACETAMINOPHEN [Concomitant]
  7. EXTERNAL BEAM RADIATION THERAPY [Concomitant]

REACTIONS (13)
  - ANOREXIA [None]
  - ASTHENIA [None]
  - DEHYDRATION [None]
  - DIARRHOEA [None]
  - DIZZINESS [None]
  - DRUG INEFFECTIVE [None]
  - FAECAL INCONTINENCE [None]
  - HYPOKALAEMIA [None]
  - HYPONATRAEMIA [None]
  - HYPOTENSION [None]
  - NAUSEA [None]
  - ORAL INTAKE REDUCED [None]
  - PROCTITIS [None]
